FAERS Safety Report 7460238-6 (Version None)
Quarter: 2011Q2

REPORT INFORMATION
  Report Type: 
  Country: None (occurrence: None)
  Receive Date: 20110427
  Receipt Date: 20110414
  Transmission Date: 20111010
  Serious: Yes (Hospitalization, Other)
  Sender: FDA-Public Use
  Company Number: 20110319

PATIENT
  Age: 43 Year
  Sex: Male
  Weight: 152.4086 kg

DRUGS (7)
  1. LASIX [Concomitant]
  2. ADIPEX [Concomitant]
  3. DEXAMETHASONE SODIUM PHOSPHATE [Suspect]
     Indication: DERMATITIS CONTACT
     Dosage: 8 MG X 2 DOSES  INTRAMUSCULAR
     Route: 030
     Dates: start: 20110323, end: 20110401
  4. CELESTONE [Suspect]
     Indication: DERMATITIS CONTACT
     Dosage: INTRAMUSCULAR
     Route: 030
     Dates: start: 20110323, end: 20110323
  5. VIAGRA [Concomitant]
  6. POTASSIUM CHLORIDE [Concomitant]
  7. LOSARTAN [Concomitant]

REACTIONS (8)
  - CARDIAC FAILURE CONGESTIVE [None]
  - DYSPNOEA [None]
  - WEIGHT INCREASED [None]
  - PULMONARY HYPERTENSION [None]
  - FLUID RETENTION [None]
  - WHITE BLOOD CELL COUNT INCREASED [None]
  - HEART RATE INCREASED [None]
  - OEDEMA [None]
